FAERS Safety Report 17662149 (Version 6)
Quarter: 2020Q3

REPORT INFORMATION
  Report Type: Spontaneous
  Country: CA (occurrence: CA)
  Receive Date: 20200413
  Receipt Date: 20200917
  Transmission Date: 20201102
  Serious: Yes (Other)
  Sender: FDA-Public Use
  Company Number: CA-GLAXOSMITHKLINE-CA2020AMR061561

PATIENT
  Age: 61 Year
  Sex: Female

DRUGS (4)
  1. BENLYSTA [Suspect]
     Active Substance: BELIMUMAB
     Indication: SYSTEMIC LUPUS ERYTHEMATOSUS
     Dosage: UNK
  2. NORITATE [Suspect]
     Active Substance: METRONIDAZOLE
     Indication: PRODUCT USED FOR UNKNOWN INDICATION
     Dosage: UNK
     Dates: start: 202005
  3. RATIO CLOBETASOL [Suspect]
     Active Substance: CLOBETASOL PROPIONATE
     Indication: PRODUCT USED FOR UNKNOWN INDICATION
     Dosage: UNK
  4. HYDROXYCHLOROQUINE [Suspect]
     Active Substance: HYDROXYCHLOROQUINE
     Indication: PRODUCT USED FOR UNKNOWN INDICATION
     Dosage: UNK

REACTIONS (37)
  - Pneumonia [Unknown]
  - Headache [Unknown]
  - Stress [Unknown]
  - Memory impairment [Unknown]
  - Sinus disorder [Unknown]
  - Antinuclear antibody positive [Unknown]
  - Retinal disorder [Unknown]
  - Product use issue [Unknown]
  - Feeling abnormal [Unknown]
  - Fatigue [Unknown]
  - Bronchitis [Unknown]
  - Fibromyalgia [Unknown]
  - Neuralgia [Unknown]
  - Arthropathy [Unknown]
  - Rash erythematous [Unknown]
  - Malaise [Unknown]
  - Social problem [Unknown]
  - Stomatitis [Not Recovered/Not Resolved]
  - Nausea [Unknown]
  - Dizziness [Unknown]
  - Skin disorder [Unknown]
  - Emotional disorder [Unknown]
  - Skin discolouration [Unknown]
  - Asthenia [Unknown]
  - Contusion [Unknown]
  - Alopecia [Unknown]
  - Blood cholesterol abnormal [Unknown]
  - Depression [Unknown]
  - Skin lesion [Unknown]
  - Nervousness [Unknown]
  - Post-traumatic stress disorder [Unknown]
  - Systemic lupus erythematosus [Recovering/Resolving]
  - Myalgia [Unknown]
  - Vision blurred [Unknown]
  - Butterfly rash [Unknown]
  - Nasopharyngitis [Unknown]
  - Hypertension [Unknown]

NARRATIVE: CASE EVENT DATE: 202004
